FAERS Safety Report 7085302-5 (Version None)
Quarter: 2010Q4

REPORT INFORMATION
  Report Type: 
  Country: None (occurrence: None)
  Receive Date: 20101105
  Receipt Date: 20101026
  Transmission Date: 20110411
  Serious: Yes (Hospitalization)
  Sender: FDA-Public Use
  Company Number: IT-PFIZER INC-2010027132

PATIENT
  Age: 104 Year
  Sex: Female

DRUGS (2)
  1. LYRICA [Suspect]
     Dosage: 1 UNIT
     Route: 048
     Dates: start: 20090828, end: 20090829
  2. TAVOR [Suspect]
     Indication: INSOMNIA
     Dosage: 1 UNIT
     Route: 048
     Dates: start: 20090101, end: 20090829

REACTIONS (8)
  - ASTHENIA [None]
  - DEHYDRATION [None]
  - DYSPNOEA [None]
  - HAEMOGLOBIN DECREASED [None]
  - LOWER LIMB FRACTURE [None]
  - PYREXIA [None]
  - RENAL IMPAIRMENT [None]
  - SOPOR [None]
